FAERS Safety Report 5442877-7 (Version None)
Quarter: 2007Q3

REPORT INFORMATION
  Report Type: 
  Country: None (occurrence: None)
  Receive Date: 20070831
  Receipt Date: 20070831
  Transmission Date: 20080115
  Serious: Yes (Life-Threatening)
  Sender: FDA-Public Use
  Company Number: None

PATIENT
  Age: 44 Year
  Sex: Female
  Weight: 65.8 kg

DRUGS (2)
  1. THYMOGLOBULIN [Suspect]
     Indication: ACUTE MYELOID LEUKAEMIA
     Dosage: 135MG DAILY IV
     Route: 042
     Dates: start: 20070820
  2. THYMOGLOBULIN [Suspect]
     Indication: STEM CELL TRANSPLANT
     Dosage: 135MG DAILY IV
     Route: 042
     Dates: start: 20070820

REACTIONS (6)
  - BLOOD PRESSURE DIASTOLIC DECREASED [None]
  - CHILLS [None]
  - FLUSHING [None]
  - INFUSION RELATED REACTION [None]
  - PYREXIA [None]
  - TACHYCARDIA [None]
